FAERS Safety Report 6478517-8 (Version None)
Quarter: 2009Q4

REPORT INFORMATION
  Report Type: 
  Country: None (occurrence: None)
  Receive Date: 20091207
  Receipt Date: 20091123
  Transmission Date: 20100525
  Serious: Yes (Life-Threatening, Hospitalization)
  Sender: FDA-Public Use
  Company Number: US-MYLANLABS-2009S1020215

PATIENT
  Age: 26 Year
  Sex: Male

DRUGS (3)
  1. CLOZAPINE [Suspect]
     Indication: SCHIZOPHRENIA, PARANOID TYPE
     Dosage: AT NIGHT
     Route: 048
  2. GLYCOPYRROLATE [Concomitant]
     Dosage: AT NIGHT
     Route: 048
  3. VALPROIC ACID [Concomitant]
     Dosage: AT NIGHT
     Route: 048

REACTIONS (3)
  - MEGACOLON [None]
  - MULTI-ORGAN FAILURE [None]
  - SEPTIC SHOCK [None]
